FAERS Safety Report 10251632 (Version 6)
Quarter: 2014Q3

REPORT INFORMATION
  Report Type: Report from Study
  Country: US (occurrence: US)
  Receive Date: 20140623
  Receipt Date: 20140827
  Transmission Date: 20150326
  Serious: Yes (Hospitalization)
  Sender: FDA-Public Use
  Company Number: US-BIOGENIDEC-2014BI057027

PATIENT
  Age: 70 Year
  Sex: Female

DRUGS (3)
  1. TYSABRI [Suspect]
     Active Substance: NATALIZUMAB
     Indication: MULTIPLE SCLEROSIS
     Route: 042
     Dates: start: 20140804
  2. TYSABRI [Suspect]
     Active Substance: NATALIZUMAB
     Indication: MULTIPLE SCLEROSIS
     Route: 042
     Dates: start: 20130701, end: 201404
  3. TYSABRI [Suspect]
     Active Substance: NATALIZUMAB
     Indication: MULTIPLE SCLEROSIS
     Route: 042

REACTIONS (5)
  - Cystitis [Recovered/Resolved]
  - Drug dose omission [Recovered/Resolved]
  - Infection [Recovered/Resolved]
  - Multiple sclerosis relapse [Recovered/Resolved]
  - Decubitus ulcer [Recovered/Resolved with Sequelae]

NARRATIVE: CASE EVENT DATE: 201404
